FAERS Safety Report 9284254 (Version 1)
Quarter: 2013Q2

REPORT INFORMATION
  Report Type: Spontaneous
  Country: IL (occurrence: IL)
  Receive Date: 20130510
  Receipt Date: 20130510
  Transmission Date: 20140414
  Serious: Yes (Hospitalization, Other)
  Sender: FDA-Public Use
  Company Number: IL-ELI_LILLY_AND_COMPANY-IL201305000047

PATIENT
  Age: 70 Year
  Sex: Male

DRUGS (12)
  1. HUMALOG 25% LISPRO, 75% NPL [Suspect]
     Indication: TYPE 2 DIABETES MELLITUS
     Dosage: 34 IU, UNK
     Dates: end: 20110318
  2. HUMALOG 25% LISPRO, 75% NPL [Suspect]
     Dosage: 26 IU, UNK
     Dates: start: 20110319, end: 20110612
  3. HUMALOG LISPRO [Suspect]
     Indication: TYPE 2 DIABETES MELLITUS
     Dosage: 61 IU, UNK
     Dates: start: 20110308, end: 20110612
  4. HUMALOG 50% LISPRO, 50% NPL [Suspect]
     Indication: TYPE 2 DIABETES MELLITUS
     Dosage: 8 IU, UNK
     Dates: start: 20110414, end: 20110601
  5. SAXAGLIPTIN [Concomitant]
     Indication: TYPE 2 DIABETES MELLITUS
     Dosage: UNK
     Dates: start: 20110303, end: 20130206
  6. PLACEBO [Concomitant]
     Indication: TYPE 2 DIABETES MELLITUS
     Dosage: UNK
     Dates: start: 20110303, end: 20130206
  7. METFORMIN [Concomitant]
     Indication: TYPE 2 DIABETES MELLITUS
     Dosage: 850 MG, UNK
     Dates: start: 20110303, end: 20110531
  8. ASPIRIN [Concomitant]
     Dosage: UNK
     Dates: start: 20110303
  9. RAMIPRIL [Concomitant]
     Dosage: 1 MG, UNK
     Dates: end: 20110531
  10. AMARYL [Concomitant]
     Indication: TYPE 2 DIABETES MELLITUS
     Dosage: 1 MG, UNK
     Dates: start: 20110612, end: 20120925
  11. INSULIN GLARGINE [Concomitant]
     Dosage: 20 IU, UNK
     Dates: start: 20120215, end: 20120513
  12. INSULIN GLARGINE [Concomitant]
     Dosage: 18 IU, UNK
     Dates: start: 20120514

REACTIONS (3)
  - Renal failure chronic [Recovered/Resolved]
  - Hypoglycaemia [Recovered/Resolved]
  - Myocardial ischaemia [Unknown]
